FAERS Safety Report 9349170 (Version 1)
Quarter: 2013Q2

REPORT INFORMATION
  Report Type: Spontaneous
  Country: US (occurrence: US)
  Receive Date: 20130614
  Receipt Date: 20130614
  Transmission Date: 20140414
  Serious: Yes (Hospitalization)
  Sender: FDA-Public Use
  Company Number: US-ABBOTT-13P-163-1101587-00

PATIENT
  Sex: Female
  Weight: 113.5 kg

DRUGS (12)
  1. HUMIRA [Suspect]
     Indication: CROHN^S DISEASE
     Dates: start: 2011, end: 201302
  2. EFFEXOR [Concomitant]
     Indication: DEPRESSION
  3. CRESTOR [Concomitant]
     Indication: BLOOD CHOLESTEROL
  4. VITAMIN D [Concomitant]
     Indication: VITAMIN D DEFICIENCY
  5. RANITIDINE [Concomitant]
     Indication: GASTROOESOPHAGEAL REFLUX DISEASE
  6. LISINOPRIL HCTZ [Concomitant]
     Indication: BLOOD PRESSURE
  7. METHOTREXATE [Concomitant]
     Indication: CROHN^S DISEASE
  8. FOLIC ACID [Concomitant]
     Indication: CROHN^S DISEASE
  9. CALTRATE [Concomitant]
     Indication: CALCIUM DEFICIENCY
  10. VYVANSE [Concomitant]
     Indication: DISTURBANCE IN ATTENTION
  11. NOVOLOG [Concomitant]
     Indication: DIABETES MELLITUS
  12. LANTUS [Concomitant]
     Indication: DIABETES MELLITUS

REACTIONS (8)
  - Fistula [Unknown]
  - Wound [Recovered/Resolved]
  - Impaired healing [Recovered/Resolved]
  - Wound infection [Recovered/Resolved]
  - Dyspnoea [Recovered/Resolved]
  - Abdominal pain [Unknown]
  - Arthralgia [Unknown]
  - Psoriasis [Unknown]
